FAERS Safety Report 8370641-8 (Version None)
Quarter: 2012Q2

REPORT INFORMATION
  Report Type: 
  Country: None (occurrence: None)
  Receive Date: 20120518
  Receipt Date: 20120510
  Transmission Date: 20120825
  Serious: Yes (Other)
  Sender: FDA-Public Use
  Company Number: US-US-EMD SERONO, INC.-7124342

PATIENT
  Sex: Male
  Weight: 50 kg

DRUGS (4)
  1. REBIF [Suspect]
     Indication: PRODUCT USED FOR UNKNOWN INDICATION
     Route: 058
     Dates: start: 20120210
  2. REBIF [Suspect]
     Dates: start: 20120409
  3. ANTI-DEPRESSANT [Concomitant]
     Indication: DEPRESSION
  4. REBIF [Suspect]
     Dates: start: 20120301

REACTIONS (9)
  - BLOOD GLUCOSE INCREASED [None]
  - FATIGUE [None]
  - PAIN IN EXTREMITY [None]
  - ASTHENIA [None]
  - VITAMIN D DEFICIENCY [None]
  - BOWEL MOVEMENT IRREGULARITY [None]
  - BACK PAIN [None]
  - POOR QUALITY SLEEP [None]
  - INFLUENZA LIKE ILLNESS [None]
